FAERS Safety Report 4749611-4 (Version None)
Quarter: 2005Q3

REPORT INFORMATION
  Report Type: 
  Country: None (occurrence: None)
  Receive Date: 20050822
  Receipt Date: 20050711
  Transmission Date: 20060218
  Serious: Yes (Hospitalization, Disabling)
  Sender: FDA-Public Use
  Company Number: US-MERCK-0507USA01511

PATIENT
  Age: 49 Year
  Sex: Male
  Weight: 80 kg

DRUGS (6)
  1. VIOXX [Suspect]
     Indication: BACK PAIN
     Route: 048
     Dates: start: 20000501, end: 20030724
  2. VIOXX [Suspect]
     Route: 048
     Dates: start: 20000501, end: 20030724
  3. VIOXX [Suspect]
     Indication: OSTEOARTHRITIS
     Route: 048
     Dates: start: 20000501, end: 20030724
  4. VIOXX [Suspect]
     Route: 048
     Dates: start: 20000501, end: 20030724
  5. TENORMIN [Concomitant]
     Route: 065
  6. CENTRUM [Concomitant]
     Route: 065

REACTIONS (1)
  - MYOCARDIAL INFARCTION [None]
